FAERS Safety Report 13676919 (Version 7)
Quarter: 2018Q1

REPORT INFORMATION
  Report Type: Report from Study
  Country: GB (occurrence: GB)
  Receive Date: 20170622
  Receipt Date: 20180208
  Transmission Date: 20180508
  Serious: Yes (Hospitalization, Other)
  Sender: FDA-Public Use
  Company Number: GB-BRISTOL-MYERS SQUIBB COMPANY-BMS-2017-036028

PATIENT
  Age: 61 Year
  Sex: Female

DRUGS (2)
  1. ABATACEPT [Suspect]
     Active Substance: ABATACEPT
     Indication: RHEUMATOID ARTHRITIS
     Dosage: 125 MG, QWK
     Route: 058
     Dates: start: 201603
  2. METHOTREXATE. [Concomitant]
     Active Substance: METHOTREXATE
     Indication: RHEUMATOID ARTHRITIS
     Dosage: 17.5 MG, UNK
     Route: 048

REACTIONS (9)
  - Malaise [Unknown]
  - Musculoskeletal stiffness [Unknown]
  - Infection [Unknown]
  - Gingivitis [Unknown]
  - Lower respiratory tract infection [Recovered/Resolved]
  - Headache [Unknown]
  - Tooth abscess [Unknown]
  - Surgery [Unknown]
  - Pyrexia [Unknown]

NARRATIVE: CASE EVENT DATE: 20170608
